FAERS Safety Report 6598038-1 (Version None)
Quarter: 2010Q1

REPORT INFORMATION
  Report Type: 
  Country: None (occurrence: None)
  Receive Date: 20100216
  Receipt Date: 20100126
  Transmission Date: 20100710
  Serious: Yes (Death, Hospitalization)
  Sender: FDA-Public Use
  Company Number: BVT-000343

PATIENT
  Age: 74 Year
  Sex: Female

DRUGS (12)
  1. KINERET [Suspect]
     Indication: RHEUMATOID ARTHRITIS
     Dates: start: 20050601, end: 20050901
  2. METHOTREXATE [Concomitant]
  3. TOCILIZUMAB [Concomitant]
  4. DECORTIN [Concomitant]
  5. CALCIMAGON (CALCIMAGON) [Concomitant]
  6. FOSAMAX [Concomitant]
  7. RITUXIMAB [Concomitant]
  8. CELEBREX [Concomitant]
  9. NEURONTIN [Concomitant]
  10. NEXIUM [Concomitant]
  11. FOLIC ACID [Concomitant]
  12. ADALIMUMAB [Concomitant]

REACTIONS (3)
  - INFECTION [None]
  - PULMONARY EMBOLISM [None]
  - PULMONARY FIBROSIS [None]
